FAERS Safety Report 24117971 (Version 2)
Quarter: 2024Q3

REPORT INFORMATION
  Report Type: Spontaneous
  Country: SK (occurrence: SK)
  Receive Date: 20240722
  Receipt Date: 20240723
  Transmission Date: 20241017
  Serious: Yes (Death, Life-Threatening)
  Sender: BOEHRINGER INGELHEIM
  Company Number: SK-BoehringerIngelheim-2024-BI-040767

PATIENT
  Age: 73 Year
  Sex: Male

DRUGS (1)
  1. OFEV [Suspect]
     Active Substance: NINTEDANIB
     Indication: Interstitial lung disease
     Route: 048
     Dates: start: 20240206

REACTIONS (2)
  - Death [Fatal]
  - Viral infection [Unknown]

NARRATIVE: CASE EVENT DATE: 20240101
